FAERS Safety Report 4789947-4 (Version None)
Quarter: 2005Q4

REPORT INFORMATION
  Report Type: 
  Country: None (occurrence: None)
  Receive Date: 20051006
  Receipt Date: 20050927
  Transmission Date: 20060501
  Serious: Yes (Death, Hospitalization)
  Sender: FDA-Public Use
  Company Number: FR-JNJFOC-20051000700

PATIENT
  Age: 85 Year
  Sex: Female

DRUGS (13)
  1. TOPALGIC [Suspect]
     Indication: ABDOMINAL PAIN
     Route: 048
  2. MYOLASTAN [Suspect]
     Indication: DRUG USE FOR UNKNOWN INDICATION
     Route: 048
  3. NEXIUM [Suspect]
     Route: 048
  4. ACETAMINOPHEN W/ PROPOXYPHENE HCL [Suspect]
     Route: 048
  5. ACETAMINOPHEN W/ PROPOXYPHENE HCL [Suspect]
     Indication: ABDOMINAL PAIN
     Route: 048
  6. KETOPROFEN [Suspect]
     Indication: ABDOMINAL PAIN
     Route: 048
  7. LASILIX [Concomitant]
     Route: 065
  8. LOVENOX [Concomitant]
     Route: 058
  9. THYROXINE [Concomitant]
     Route: 065
  10. TENORMIN [Concomitant]
     Route: 065
  11. CITALOPRAM HYDROBROMIDE [Concomitant]
     Route: 065
  12. ELISOR [Concomitant]
     Route: 048
  13. CAPTOPRIL [Concomitant]
     Route: 048

REACTIONS (7)
  - ABDOMINAL PAIN [None]
  - CONSTIPATION [None]
  - DIARRHOEA [None]
  - DIVERTICULAR PERFORATION [None]
  - GASTROINTESTINAL INFLAMMATION [None]
  - GASTROINTESTINAL NECROSIS [None]
  - SEPTIC SHOCK [None]
